FAERS Safety Report 5502446-7 (Version None)
Quarter: 2007Q4

REPORT INFORMATION
  Report Type: 
  Country: None (occurrence: None)
  Receive Date: 20071030
  Receipt Date: 20071018
  Transmission Date: 20080405
  Serious: Yes (Life-Threatening, Hospitalization, Other)
  Sender: FDA-Public Use
  Company Number: PL-PFIZER INC-2007077600

PATIENT
  Sex: Male
  Weight: 84 kg

DRUGS (5)
  1. SU-011,248 [Suspect]
     Indication: RENAL CELL CARCINOMA STAGE UNSPECIFIED
     Route: 048
     Dates: start: 20060317, end: 20061019
  2. SU-011,248 [Suspect]
     Route: 048
  3. DILATREND [Concomitant]
     Route: 048
  4. FUROSEMIDE [Concomitant]
     Route: 048
  5. SERTRALINE [Concomitant]
     Route: 048

REACTIONS (1)
  - EMBOLISM [None]
